FAERS Safety Report 7039485-3 (Version None)
Quarter: 2010Q4

REPORT INFORMATION
  Report Type: 
  Country: None (occurrence: None)
  Receive Date: 20101012
  Receipt Date: 20101006
  Transmission Date: 20110411
  Serious: Yes (Other)
  Sender: FDA-Public Use
  Company Number: NL-ROCHE-731900

PATIENT
  Sex: Male

DRUGS (1)
  1. VESANOID [Suspect]
     Route: 048
     Dates: end: 20101006

REACTIONS (1)
  - PSYCHOTIC DISORDER [None]
